FAERS Safety Report 5775974-7 (Version None)
Quarter: 2008Q2

REPORT INFORMATION
  Report Type: 
  Country: None (occurrence: None)
  Receive Date: 20080617
  Receipt Date: 20080609
  Transmission Date: 20081010
  Serious: Yes (Hospitalization)
  Sender: FDA-Public Use
  Company Number: US-ABBOTT-08P-163-0455904-00

PATIENT
  Age: 57 Year
  Sex: Female

DRUGS (2)
  1. SYNTHROID [Suspect]
     Indication: HYPOTHYROIDISM
     Route: 048
  2. BETA BLOCKER [Interacting]
     Indication: HYPERTENSION

REACTIONS (2)
  - DRUG INTERACTION [None]
  - PRINZMETAL ANGINA [None]
